FAERS Safety Report 9933128 (Version 2)
Quarter: 2014Q1

REPORT INFORMATION
  Report Type: Report from Study
  Country: ES (occurrence: ES)
  Receive Date: 20140228
  Receipt Date: 20140326
  Transmission Date: 20141002
  Serious: Yes (Other)
  Sender: FDA-Public Use
  Company Number: ES-BAYER-2014-030526

PATIENT
  Age: 81 Year
  Sex: Male
  Weight: 83 kg

DRUGS (2)
  1. REGORAFENIB [Suspect]
     Indication: COLORECTAL CANCER METASTATIC
     Dosage: 80 MG, QD
     Route: 048
     Dates: start: 20131106, end: 20131119
  2. ENALAPRIL [Concomitant]
     Indication: HYPERTENSION
     Dosage: DAILY DOSE 10 MG
     Route: 048

REACTIONS (1)
  - Hyperuricaemia [Recovered/Resolved]
